FAERS Safety Report 24749801 (Version 5)
Quarter: 2025Q1

REPORT INFORMATION
  Report Type: Spontaneous
  Country: AR (occurrence: AR)
  Receive Date: 20241218
  Receipt Date: 20250212
  Transmission Date: 20250409
  Serious: No
  Sender: PFIZER
  Company Number: AR-PFIZER INC-202400318712

PATIENT
  Age: 13 Year
  Sex: Male

DRUGS (1)
  1. GENOTROPIN [Suspect]
     Active Substance: SOMATROPIN
     Indication: Growth hormone deficiency
     Dates: start: 20200220

REACTIONS (5)
  - Drug dose omission by device [Unknown]
  - Expired device used [Unknown]
  - Device issue [Unknown]
  - Device occlusion [Unknown]
  - Device power source issue [Unknown]
